FAERS Safety Report 6193518-5 (Version None)
Quarter: 2009Q2

REPORT INFORMATION
  Report Type: 
  Country: None (occurrence: None)
  Receive Date: 20090514
  Receipt Date: 20090505
  Transmission Date: 20091009
  Serious: Yes (Hospitalization, Other)
  Sender: FDA-Public Use
  Company Number: 60023

PATIENT
  Age: 72 Year
  Sex: Male

DRUGS (1)
  1. CYCLOSPORINE [Suspect]

REACTIONS (10)
  - BLOOD CULTURE POSITIVE [None]
  - BONE MARROW FAILURE [None]
  - LUNG INFECTION [None]
  - PLATELET COUNT DECREASED [None]
  - PULMONARY ARTERY THROMBOSIS [None]
  - PULMONARY INFARCTION [None]
  - RED BLOOD CELL COUNT DECREASED [None]
  - RESPIRATORY FAILURE [None]
  - STAPHYLOCOCCAL INFECTION [None]
  - ZYGOMYCOSIS [None]
